FAERS Safety Report 4475906-8 (Version None)
Quarter: 2004Q4

REPORT INFORMATION
  Report Type: 
  Country: None (occurrence: None)
  Receive Date: 20041012
  Receipt Date: 20041001
  Transmission Date: 20050328
  Serious: Yes (Death, Hospitalization)
  Sender: FDA-Public Use
  Company Number: 2003156681US

PATIENT
  Age: 67 Year
  Sex: Female
  Weight: 69.4 kg

DRUGS (13)
  1. CELEBREX [Suspect]
     Dosage: 200 MG, ORAL
     Route: 048
     Dates: start: 20000501
  2. HUMULIN N [Concomitant]
  3. VITAPLEX (VITAMINS NOS) [Concomitant]
  4. LEVAQUIN [Concomitant]
  5. PRILOSEC [Concomitant]
  6. NITRO-DUR [Concomitant]
  7. LANOXIN [Concomitant]
  8. ISOSORBIDE (ISOSORBIDE) [Concomitant]
  9. PROCARDIA XL [Concomitant]
  10. PLAVIX [Concomitant]
  11. TOPROL-XL [Concomitant]
  12. SYNTHROID [Concomitant]
  13. NITROSTAT [Concomitant]

REACTIONS (8)
  - CARDIAC FAILURE CONGESTIVE [None]
  - CARDIO-RESPIRATORY ARREST [None]
  - PAIN IN EXTREMITY [None]
  - POST PROCEDURAL COMPLICATION [None]
  - SEPTIC SHOCK [None]
  - SKIN DISCOLOURATION [None]
  - VENTRICULAR FIBRILLATION [None]
  - VENTRICULAR TACHYCARDIA [None]
